FAERS Safety Report 25025455 (Version 1)
Quarter: 2025Q1

REPORT INFORMATION
  Report Type: Spontaneous
  Country: US (occurrence: US)
  Receive Date: 20250228
  Receipt Date: 20250228
  Transmission Date: 20250408
  Serious: Yes (Other)
  Sender: MERCK SHARP & DOHME LLC
  Company Number: US-009507513-2257695

PATIENT
  Age: 50 Year
  Sex: Female

DRUGS (4)
  1. POSACONAZOLE [Suspect]
     Active Substance: POSACONAZOLE
     Indication: Vulvovaginal candidiasis
     Route: 048
     Dates: start: 201408
  2. POSACONAZOLE [Suspect]
     Active Substance: POSACONAZOLE
     Indication: Vulvovaginal candidiasis
     Route: 048
  3. POSACONAZOLE [Suspect]
     Active Substance: POSACONAZOLE
     Indication: Vulvovaginal candidiasis
     Route: 048
     Dates: start: 200808, end: 2012
  4. POSACONAZOLE [Suspect]
     Active Substance: POSACONAZOLE
     Indication: Vulvovaginal candidiasis
     Route: 048
     Dates: start: 2012, end: 2014

REACTIONS (2)
  - Neuropathy peripheral [Recovering/Resolving]
  - Product use in unapproved indication [Unknown]

NARRATIVE: CASE EVENT DATE: 20080801
